FAERS Safety Report 8520386-6 (Version None)
Quarter: 2012Q3

REPORT INFORMATION
  Report Type: 
  Country: None (occurrence: None)
  Receive Date: 20120719
  Receipt Date: 20120712
  Transmission Date: 20120928
  Serious: Yes (Death, Hospitalization, Other)
  Sender: FDA-Public Use
  Company Number: AU-GENZYME-CLOF-1001290

PATIENT
  Sex: Female

DRUGS (3)
  1. CLOLAR [Suspect]
     Indication: ACUTE MYELOID LEUKAEMIA
     Dosage: UNK
     Route: 065
     Dates: start: 20101025, end: 20101029
  2. CLOLAR [Suspect]
     Dosage: UNK
     Route: 065
     Dates: start: 20101129, end: 20101203
  3. METFORMIN HYDROCHLORIDE [Concomitant]
     Indication: PRODUCT USED FOR UNKNOWN INDICATION
     Dosage: UNK
     Route: 065

REACTIONS (9)
  - MYOCARDIAL INFARCTION [None]
  - FATIGUE [None]
  - ATRIAL FIBRILLATION [None]
  - HAEMOGLOBIN DECREASED [None]
  - DELUSION [None]
  - HALLUCINATION [None]
  - CONSTIPATION [None]
  - RENAL FAILURE ACUTE [None]
  - FEBRILE NEUTROPENIA [None]
